FAERS Safety Report 11883481 (Version 2)
Quarter: 2016Q1

REPORT INFORMATION
  Report Type: Spontaneous
  Country: TW (occurrence: TW)
  Receive Date: 20151231
  Receipt Date: 20160105
  Transmission Date: 20160526
  Serious: Yes (Hospitalization)
  Sender: FDA-Public Use
  Company Number: PHBS2000TW08141

PATIENT
  Age: 42 Year
  Sex: Female

DRUGS (14)
  1. BETHANECHOL CHLORIDE. [Suspect]
     Active Substance: BETHANECHOL CHLORIDE
     Indication: SEIZURE
     Dosage: 5 MG, BID
     Route: 065
  2. TRAZODONE [Suspect]
     Active Substance: TRAZODONE HYDROCHLORIDE
     Indication: SEIZURE
     Dosage: 150 MG, QD
     Route: 065
  3. LITHIUM. [Interacting]
     Active Substance: LITHIUM
     Indication: BIPOLAR I DISORDER
     Dosage: 900 MG, QD
     Route: 065
  4. TRAZODONE [Suspect]
     Active Substance: TRAZODONE HYDROCHLORIDE
     Indication: BIPOLAR I DISORDER
  5. TRIHEXYPHENIDYL [Suspect]
     Active Substance: TRIHEXYPHENIDYL
     Indication: SEIZURE
  6. CARBAMAZEPINE. [Interacting]
     Active Substance: CARBAMAZEPINE
     Indication: BIPOLAR I DISORDER
  7. CLONAZEPAM. [Suspect]
     Active Substance: CLONAZEPAM
     Indication: SEIZURE
     Dosage: 1 MG, BEDTIME
     Route: 065
  8. CLONAZEPAM. [Suspect]
     Active Substance: CLONAZEPAM
     Indication: BIPOLAR I DISORDER
  9. TRIHEXYPHENIDYL [Suspect]
     Active Substance: TRIHEXYPHENIDYL
     Indication: BIPOLAR I DISORDER
     Dosage: 5 MG, QHS
     Route: 065
  10. BETHANECHOL CHLORIDE. [Suspect]
     Active Substance: BETHANECHOL CHLORIDE
     Indication: BIPOLAR I DISORDER
  11. LITHIUM. [Interacting]
     Active Substance: LITHIUM
     Indication: SEIZURE
  12. CARBAMAZEPINE. [Interacting]
     Active Substance: CARBAMAZEPINE
     Indication: SEIZURE
     Dosage: 200 MG, BID
     Route: 065
  13. MOPERONE HYDROCHLORIDE [Suspect]
     Active Substance: MOPERONE HYDROCHLORIDE
     Indication: SEIZURE
     Dosage: 10 MG, BID
     Route: 065
  14. MOPERONE HYDROCHLORIDE [Suspect]
     Active Substance: MOPERONE HYDROCHLORIDE
     Indication: BIPOLAR I DISORDER

REACTIONS (3)
  - Hypokalaemia [Unknown]
  - Bradycardia [Recovered/Resolved]
  - Drug interaction [Recovered/Resolved]

NARRATIVE: CASE EVENT DATE: 19970514
